FAERS Safety Report 4650723-4 (Version None)
Quarter: 2005Q2

REPORT INFORMATION
  Report Type: 
  Country: None (occurrence: None)
  Receive Date: 20050429
  Receipt Date: 20050429
  Transmission Date: 20051028
  Serious: Yes (Other)
  Sender: FDA-Public Use
  Company Number: None

PATIENT
  Age: 30 Year
  Sex: Female
  Weight: 66.6788 kg

DRUGS (1)
  1. DEPO-PROVERA [Suspect]
     Indication: CONTRACEPTION
     Dosage: 3MTH -EVERY-

REACTIONS (10)
  - ABDOMINAL PAIN [None]
  - ANXIETY [None]
  - BREAST TENDERNESS [None]
  - FATIGUE [None]
  - HAEMORRHAGE [None]
  - HAIR GROWTH ABNORMAL [None]
  - HEADACHE [None]
  - IRRITABILITY [None]
  - LOSS OF LIBIDO [None]
  - MUSCLE SPASMS [None]
